FAERS Safety Report 24591937 (Version 2)
Quarter: 2024Q4

REPORT INFORMATION
  Report Type: Spontaneous
  Country: CO (occurrence: CO)
  Receive Date: 20241108
  Receipt Date: 20241121
  Transmission Date: 20250115
  Serious: Yes (Other)
  Sender: SERVIER
  Company Number: CO-SERVIER-S24013993

PATIENT

DRUGS (1)
  1. ONCASPAR [Suspect]
     Active Substance: PEGASPARGASE
     Indication: Acute lymphocytic leukaemia
     Dosage: 1500 IU
     Route: 042
     Dates: start: 20241028, end: 20241028

REACTIONS (1)
  - Hypersensitivity [Recovered/Resolved]

NARRATIVE: CASE EVENT DATE: 20241028
